FAERS Safety Report 8261234-1 (Version None)
Quarter: 2012Q2

REPORT INFORMATION
  Report Type: 
  Country: None (occurrence: None)
  Receive Date: 20120405
  Receipt Date: 20120326
  Transmission Date: 20120825
  Serious: Yes (Other)
  Sender: FDA-Public Use
  Company Number: US-ELI_LILLY_AND_COMPANY-US201203008307

PATIENT
  Sex: Female

DRUGS (2)
  1. LANTUS [Concomitant]
     Dosage: 25 U, EACH MORNING
     Route: 058
  2. HUMALOG [Suspect]
     Dosage: UNK, OTHER

REACTIONS (1)
  - RENAL CANCER [None]
